FAERS Safety Report 15789541 (Version 1)
Quarter: 2018Q4

REPORT INFORMATION
  Report Type: Spontaneous
  Country: US (occurrence: US)
  Receive Date: 20181213
  Receipt Date: 20181213
  Transmission Date: 20190205
  Serious: No
  Sender: FDA-Public Use
  Company Number: None

PATIENT
  Age: 31 Year
  Sex: Female

DRUGS (1)
  1. RYDAPT [Suspect]
     Active Substance: MIDOSTAURIN
     Dates: start: 20181026

REACTIONS (3)
  - Platelet count decreased [None]
  - Nasopharyngitis [None]
  - Full blood count decreased [None]

NARRATIVE: CASE EVENT DATE: 20181129
